FAERS Safety Report 20102068 (Version 1)
Quarter: 2021Q4

REPORT INFORMATION
  Report Type: Spontaneous
  Country: CA (occurrence: None)
  Receive Date: 20211123
  Receipt Date: 20211123
  Transmission Date: 20220303
  Serious: Yes (Other)
  Sender: FDA-Public Use
  Company Number: CA-ROCHE-2956622

PATIENT
  Sex: Female
  Weight: 116.3 kg

DRUGS (1)
  1. OCREVUS [Suspect]
     Active Substance: OCRELIZUMAB
     Indication: Multiple sclerosis
     Route: 065

REACTIONS (3)
  - Pain in extremity [Not Recovered/Not Resolved]
  - Pulse absent [Not Recovered/Not Resolved]
  - Diabetes mellitus [Unknown]
